FAERS Safety Report 20821789 (Version 1)
Quarter: 2022Q2

REPORT INFORMATION
  Report Type: Spontaneous
  Country: US (occurrence: US)
  Receive Date: 20220512
  Receipt Date: 20220512
  Transmission Date: 20220720
  Serious: Yes (Other)
  Sender: FDA-Public Use
  Company Number: US-PFIZER INC-202200673768

PATIENT
  Age: 42 Year

DRUGS (1)
  1. METHOTREXATE SODIUM [Suspect]
     Active Substance: METHOTREXATE SODIUM
     Dosage: UNK

REACTIONS (6)
  - Joint destruction [Unknown]
  - Drug hypersensitivity [Unknown]
  - Anger [Unknown]
  - Stress [Unknown]
  - Nausea [Unknown]
  - Arthritis [Unknown]
